FAERS Safety Report 6526895-3 (Version None)
Quarter: 2010Q1

REPORT INFORMATION
  Report Type: 
  Country: None (occurrence: None)
  Receive Date: 20100104
  Receipt Date: 20100104
  Transmission Date: 20100710
  Serious: Yes (Life-Threatening, Hospitalization, Other)
  Sender: FDA-Public Use
  Company Number: None

PATIENT
  Age: 47 Year
  Sex: Female
  Weight: 95.2554 kg

DRUGS (1)
  1. CLARATIN D WAS PRESCRIPTION AT THE TIME [Suspect]
     Indication: SINUS DISORDER

REACTIONS (3)
  - DIZZINESS [None]
  - DRUG TOXICITY [None]
  - MYOCARDIAL INFARCTION [None]
